FAERS Safety Report 8420354-9 (Version None)
Quarter: 2012Q2

REPORT INFORMATION
  Report Type: 
  Country: None (occurrence: None)
  Receive Date: 20120607
  Receipt Date: 20120529
  Transmission Date: 20120825
  Serious: Yes (Other)
  Sender: FDA-Public Use
  Company Number: US-ABBOTT-12P-163-0941132-00

PATIENT
  Sex: Female
  Weight: 68.1 kg

DRUGS (5)
  1. HUMIRA [Suspect]
     Indication: RHEUMATOID ARTHRITIS
     Dates: start: 20090101, end: 20110101
  2. PROZAC [Concomitant]
     Indication: ANXIETY
  3. PLAQUENIL [Concomitant]
     Indication: RHEUMATOID ARTHRITIS
  4. SYNTHROID [Suspect]
     Indication: HYPOTHYROIDISM
  5. PROZAC [Concomitant]
     Indication: DEPRESSION

REACTIONS (8)
  - PLATELET COUNT DECREASED [None]
  - POSTPARTUM DEPRESSION [None]
  - BREAST INFECTION [None]
  - RHEUMATOID ARTHRITIS [None]
  - PROLONGED PREGNANCY [None]
  - CANDIDIASIS [None]
  - FAILED INDUCTION OF LABOUR [None]
  - LACTATION DISORDER [None]
